FAERS Safety Report 9166769 (Version 1)
Quarter: 2012Q4

REPORT INFORMATION
  Report Type: 
  Country: US (occurrence: US)
  Receive Date: 20121123
  Receipt Date: 20121123
  Transmission Date: 20130627
  Serious: Yes (Other)
  Sender: FDA-Public Use
  Company Number: US-RB-046625-12

PATIENT
  Age: 58 Year
  Sex: Male

DRUGS (2)
  1. CEPACOL [Suspect]
     Indication: PRODUCT USED FOR UNKNOWN INDICATION
     Dosage: 1 lozenge
     Route: 048
     Dates: start: 20121107
  2. CEPACOL [Suspect]

REACTIONS (3)
  - Confusional state [Recovered/Resolved]
  - Euphoric mood [Recovered/Resolved]
  - Feeling abnormal [Recovered/Resolved]
